FAERS Safety Report 16992441 (Version 1)
Quarter: 2019Q4

REPORT INFORMATION
  Report Type: Spontaneous
  Country: BG (occurrence: BG)
  Receive Date: 20191105
  Receipt Date: 20191105
  Transmission Date: 20200122
  Serious: Yes (Other)
  Sender: FDA-Public Use
  Company Number: BG-TEVA-2019-BG-1132235

PATIENT
  Age: 72 Year
  Sex: Male

DRUGS (4)
  1. IRBESARTAN. [Suspect]
     Active Substance: IRBESARTAN
     Indication: HYPERTENSION
     Dosage: IN THE MORNING
     Route: 065
     Dates: start: 2016, end: 2018
  2. VALSARTAN W/HYDROCHLOROTHIAZIDE [Suspect]
     Active Substance: HYDROCHLOROTHIAZIDE\VALSARTAN
     Dosage: 150MG/12.5MG ONCE A DAY (IN THE MORNING), FOR A PERIOD OF 7 MONTHS
     Route: 065
  3. VALSARTAN. [Suspect]
     Active Substance: VALSARTAN
     Indication: HYPERTENSION
     Dosage: IN THE MORNING, FOR A PERIOD OF 13 MONTHS
     Route: 065
  4. VALSARTAN W/HYDROCHLOROTHIAZIDE [Suspect]
     Active Substance: HYDROCHLOROTHIAZIDE\VALSARTAN
     Indication: HYPERTENSION
     Dosage: 160MG/12.5MG ONCE A DAY (IN THE MORNING), FOR 4 MONTHS
     Route: 065

REACTIONS (2)
  - Prostate cancer [Recovered/Resolved]
  - Malignant melanoma [Recovering/Resolving]
